FAERS Safety Report 17691153 (Version 1)
Quarter: 2020Q2

REPORT INFORMATION
  Report Type: Spontaneous
  Country: JP (occurrence: JP)
  Receive Date: 20200422
  Receipt Date: 20200422
  Transmission Date: 20200714
  Serious: Yes (Hospitalization, Other)
  Sender: FDA-Public Use
  Company Number: JP-TEVA-2020-JP-1224781

PATIENT
  Age: 40 Year
  Sex: Male

DRUGS (2)
  1. VORICONAZOLE. [Suspect]
     Active Substance: VORICONAZOLE
     Indication: ASPERGILLUS INFECTION
     Route: 065
  2. CERITINIB [Interacting]
     Active Substance: CERITINIB
     Indication: LUNG ADENOCARCINOMA
     Dosage: FIFTH-LINE
     Route: 065

REACTIONS (2)
  - Drug interaction [Recovered/Resolved]
  - Interstitial lung disease [Recovered/Resolved]
